FAERS Safety Report 22376550 (Version 1)
Quarter: 2023Q2

REPORT INFORMATION
  Report Type: Report from Study
  Country: US (occurrence: US)
  Receive Date: 20230528
  Receipt Date: 20230528
  Transmission Date: 20230721
  Serious: Yes (Hospitalization, Other)
  Sender: FDA-Public Use
  Company Number: US-002147023-NVSC2023US117996

PATIENT
  Sex: Male

DRUGS (1)
  1. ILARIS [Suspect]
     Active Substance: CANAKINUMAB
     Indication: Still^s disease
     Dosage: 250 MG, Q4W
     Route: 058
     Dates: start: 20221111, end: 20230428

REACTIONS (5)
  - Haemophagocytic lymphohistiocytosis [Unknown]
  - Condition aggravated [Unknown]
  - Lymphadenopathy [Unknown]
  - Weight decreased [Unknown]
  - Pyrexia [Unknown]
